FAERS Safety Report 20538318 (Version 1)
Quarter: 2022Q1

REPORT INFORMATION
  Report Type: Report from Study
  Country: GB (occurrence: GB)
  Receive Date: 20220302
  Receipt Date: 20220302
  Transmission Date: 20220423
  Serious: Yes (Other)
  Sender: FDA-Public Use
  Company Number: GB-JNJFOC-20210842067

PATIENT
  Age: 46 Year
  Sex: Female

DRUGS (1)
  1. STELARA [Suspect]
     Active Substance: USTEKINUMAB
     Indication: Crohn^s disease
     Route: 058
     Dates: start: 20191218

REACTIONS (9)
  - Groin abscess [Unknown]
  - Abscess [Recovering/Resolving]
  - Cellulitis [Unknown]
  - Lower respiratory tract infection [Unknown]
  - Arthropathy [Unknown]
  - Bronchitis [Unknown]
  - Wound [Unknown]
  - Pain in jaw [Unknown]
  - Product dose omission issue [Unknown]

NARRATIVE: CASE EVENT DATE: 20200101
